FAERS Safety Report 14628089 (Version 1)
Quarter: 2018Q1

REPORT INFORMATION
  Report Type: Spontaneous
  Country: US (occurrence: US)
  Receive Date: 20180312
  Receipt Date: 20180312
  Transmission Date: 20180509
  Serious: No
  Sender: FDA-Public Use
  Company Number: US-ALLERGAN-1748620US

PATIENT
  Age: 67 Year
  Sex: Female
  Weight: 52.15 kg

DRUGS (3)
  1. ESTRACE [Suspect]
     Active Substance: ESTRADIOL
     Indication: VULVOVAGINAL DRYNESS
     Dosage: 1 G, BI-WEEKLY
     Route: 067
  2. DESONIDE. [Concomitant]
     Active Substance: DESONIDE
     Indication: ECZEMA
     Dosage: UNK UNK, PRN
     Route: 061
  3. NYSTATIN. [Concomitant]
     Active Substance: NYSTATIN
     Indication: ECZEMA
     Route: 061

REACTIONS (3)
  - Application site erythema [Not Recovered/Not Resolved]
  - Application site pruritus [Not Recovered/Not Resolved]
  - Vaginal exfoliation [Unknown]

NARRATIVE: CASE EVENT DATE: 201705
